FAERS Safety Report 16167663 (Version 1)
Quarter: 2019Q2

REPORT INFORMATION
  Report Type: Spontaneous
  Country: GB (occurrence: GB)
  Receive Date: 20190408
  Receipt Date: 20190408
  Transmission Date: 20190711
  Serious: Yes (Other)
  Sender: FDA-Public Use
  Company Number: GB-ACCORD-119244

PATIENT
  Age: 64 Year
  Sex: Male

DRUGS (2)
  1. PIOGLITAZONE/PIOGLITAZONE HYDROCHLORIDE [Suspect]
     Active Substance: PIOGLITAZONE HYDROCHLORIDE
     Indication: DIABETES MELLITUS
     Dates: end: 2011
  2. ROSIGLITAZONE/ROSIGLITAZONE MALEATE [Suspect]
     Active Substance: ROSIGLITAZONE\ROSIGLITAZONE MALEATE
     Indication: DIABETES MELLITUS
     Dates: end: 2011

REACTIONS (5)
  - Back pain [Not Recovered/Not Resolved]
  - Neuropathy peripheral [Not Recovered/Not Resolved]
  - Tinnitus [Not Recovered/Not Resolved]
  - Withdrawal syndrome [Unknown]
  - Pain in extremity [Not Recovered/Not Resolved]
